FAERS Safety Report 15237510 (Version 2)
Quarter: 2018Q3

REPORT INFORMATION
  Report Type: Report from Study
  Country: BR (occurrence: BR)
  Receive Date: 20180803
  Receipt Date: 20180810
  Transmission Date: 20181010
  Serious: Yes (Hospitalization, Other)
  Sender: FDA-Public Use
  Company Number: PHHY2018BR059729

PATIENT
  Sex: Male
  Weight: 73 kg

DRUGS (6)
  1. DIOVAN AMLO FIX [Suspect]
     Active Substance: AMLODIPINE\VALSARTAN
     Indication: HYPERTENSION
     Dosage: 0.5 DF (AMLODIPINE 10MG,VALSARTAN 320), QD
     Route: 048
     Dates: start: 199806
  2. DIOVAN [Suspect]
     Active Substance: VALSARTAN
     Indication: HYPERTENSION
     Dosage: 0.5 DF, UNK
     Route: 048
     Dates: start: 19980708
  3. DIAMICRON [Concomitant]
     Active Substance: GLICLAZIDE
     Indication: DIABETES MELLITUS
     Dosage: 2 DF, QD (MANY YEARS AGO)
     Route: 065
  4. PROLOPA [Concomitant]
     Active Substance: BENSERAZIDE\LEVODOPA
     Indication: PARKINSON^S DISEASE
     Dosage: 4 DF, QD ( 5 YEARS AGO)
     Route: 065
  5. BRILINTA [Concomitant]
     Active Substance: TICAGRELOR
     Indication: COAGULOPATHY
     Dosage: 1 DF, QD (AFTER LUNCH)
     Route: 048
  6. GALVUS MET [Concomitant]
     Active Substance: METFORMIN HYDROCHLORIDE\VILDAGLIPTIN
     Indication: DIABETES MELLITUS
     Dosage: 1 DF (METFORMIN 1000 MG, VILDAGLIPTIN 50 MG), BID
     Route: 048

REACTIONS (4)
  - Wrong technique in product usage process [Not Recovered/Not Resolved]
  - Drug prescribing error [Not Recovered/Not Resolved]
  - Coronary vein stenosis [Recovered/Resolved]
  - Parkinson^s disease [Recovered/Resolved]
